FAERS Safety Report 6862204-8 (Version None)
Quarter: 2010Q3

REPORT INFORMATION
  Report Type: 
  Country: None (occurrence: None)
  Receive Date: 20100719
  Receipt Date: 20100707
  Transmission Date: 20110219
  Serious: Yes (Hospitalization)
  Sender: FDA-Public Use
  Company Number: UTC-001236

PATIENT
  Age: 42 Year
  Sex: Female

DRUGS (2)
  1. REMODULIN [Suspect]
     Dosage: 83.52 UG/KG (0.058 UG/KG, 1 IN 1 MIN), SUBCUTANEOUS
     Route: 058
     Dates: start: 20090606
  2. REVATIO [Concomitant]

REACTIONS (1)
  - PNEUMONIA [None]
